FAERS Safety Report 8991932 (Version 1)
Quarter: 2012Q4

REPORT INFORMATION
  Report Type: Report from Study
  Country: CA (occurrence: CA)
  Receive Date: 20121231
  Receipt Date: 20121231
  Transmission Date: 20130627
  Serious: Yes (Other)
  Sender: FDA-Public Use
  Company Number: CA-ROCHE-1174013

PATIENT
  Age: 65 None
  Sex: Female
  Weight: 60 kg

DRUGS (6)
  1. TOCILIZUMAB [Suspect]
     Indication: RHEUMATOID ARTHRITIS
     Route: 042
     Dates: start: 20120611
  2. FELODIPINE [Suspect]
     Indication: BLOOD PRESSURE
     Route: 065
  3. PAROXETINE [Concomitant]
  4. REQUIP [Concomitant]
     Indication: RESTLESS LEGS SYNDROME
  5. METHOTREXATE [Concomitant]
  6. NORTRIPTYLINE [Concomitant]

REACTIONS (3)
  - Blood pressure increased [Unknown]
  - Tooth abscess [Unknown]
  - Oedema peripheral [Recovering/Resolving]
